FAERS Safety Report 9310215 (Version 1)
Quarter: 2013Q2

REPORT INFORMATION
  Report Type: Spontaneous
  Country: BR (occurrence: BR)
  Receive Date: 20130527
  Receipt Date: 20130527
  Transmission Date: 20140414
  Serious: Yes (Other)
  Sender: FDA-Public Use
  Company Number: PHHY2013BR051817

PATIENT
  Sex: Male
  Weight: 40 kg

DRUGS (6)
  1. RITALINA [Suspect]
     Indication: ATTENTION DEFICIT/HYPERACTIVITY DISORDER
     Dosage: 6 DF, DAILY (2 TABLETS IN THE MORNING, 1 TABLET AT 10 H, 2 TABLETS AT 13 H, 1 TABLET IN PLAYGROUND)
     Route: 048
     Dates: end: 20130329
  2. RITALINA [Suspect]
     Indication: IMPULSIVE BEHAVIOUR
  3. RISPERIDONE [Suspect]
     Indication: SLEEP DISORDER
     Dosage: 1 DF,DAILY
     Route: 048
  4. RISPERIDONE [Suspect]
     Dosage: 2 DF, DAILY
     Route: 048
  5. VALPROIC ACID [Suspect]
     Dosage: 4 DF, DAILY
     Route: 048
  6. LONGACTIL [Suspect]
     Indication: AGITATION
     Dosage: 4 DF, DAILY
     Route: 048

REACTIONS (8)
  - Muscle contracture [Recovered/Resolved]
  - Convulsion [Recovered/Resolved]
  - Irritability [Not Recovered/Not Resolved]
  - Aggression [Not Recovered/Not Resolved]
  - Nervousness [Not Recovered/Not Resolved]
  - Insomnia [Not Recovered/Not Resolved]
  - Disturbance in attention [Not Recovered/Not Resolved]
  - Psychomotor hyperactivity [Not Recovered/Not Resolved]
